FAERS Safety Report 9540212 (Version 1)
Quarter: 2013Q3

REPORT INFORMATION
  Report Type: Spontaneous
  Country: IT (occurrence: IT)
  Receive Date: 20130920
  Receipt Date: 20130920
  Transmission Date: 20140515
  Serious: Yes (Death, Disabling)
  Sender: FDA-Public Use
  Company Number: IT-ROCHE-1277284

PATIENT
  Age: 65 Year
  Sex: Male

DRUGS (10)
  1. HERCEPTIN [Suspect]
     Indication: ADENOCARCINOMA GASTRIC
     Route: 042
     Dates: start: 20130212, end: 20130227
  2. OXALIPLATIN [Suspect]
     Indication: ADENOCARCINOMA GASTRIC
     Route: 042
     Dates: start: 20130212, end: 20130227
  3. ONDANSETRON [Concomitant]
     Indication: PREMEDICATION
     Route: 042
     Dates: start: 20130227, end: 20130227
  4. FLUOROURACIL [Concomitant]
     Route: 042
     Dates: start: 20130212, end: 20130212
  5. LEDERFOLIN [Concomitant]
     Route: 042
     Dates: start: 20130212, end: 20130212
  6. IVOR [Concomitant]
     Route: 058
  7. ZESTRIL [Concomitant]
     Route: 048
  8. SOLDESAM [Concomitant]
     Indication: PREMEDICATION
     Route: 042
     Dates: start: 20130227, end: 20130227
  9. PEPTAZOL (ITALY) [Concomitant]
     Route: 048
  10. TRIMETON (ITALY) [Concomitant]
     Indication: PREMEDICATION
     Route: 030
     Dates: start: 20130227, end: 20130227

REACTIONS (2)
  - Cardio-respiratory arrest [Fatal]
  - Coma [Fatal]
